FAERS Safety Report 8805538 (Version 1)
Quarter: 2012Q4

REPORT INFORMATION
  Report Type: 
  Country: US (occurrence: US)
  Receive Date: 20120924
  Receipt Date: 20120924
  Transmission Date: 20130627
  Serious: Yes (Other)
  Sender: FDA-Public Use
  Company Number: US-PFIZER INC-2012234309

PATIENT
  Age: 16 Year
  Sex: Female
  Weight: 138.32 kg

DRUGS (4)
  1. ROBITUSSIN PEAK COLD NIGHTTIME NASAL RELIEF [Suspect]
     Indication: COUGH
     Dosage: UNK, 3x/day
     Route: 048
     Dates: start: 20120830, end: 20120910
  2. ROBITUSSIN PEAK COLD NIGHTTIME NASAL RELIEF [Suspect]
     Indication: OROPHARYNGEAL PAIN
  3. ROBITUSSIN PEAK COLD NIGHTTIME MULTI-SYMPTOM COLD [Suspect]
     Indication: COUGH
     Dosage: UNK
     Route: 048
     Dates: start: 20120830, end: 20120910
  4. ROBITUSSIN PEAK COLD NIGHTTIME MULTI-SYMPTOM COLD [Suspect]
     Indication: OROPHARYNGEAL PAIN

REACTIONS (7)
  - Pneumonia [Not Recovered/Not Resolved]
  - Drug ineffective [Unknown]
  - Rhinorrhoea [Not Recovered/Not Resolved]
  - Nasal congestion [Not Recovered/Not Resolved]
  - Headache [Not Recovered/Not Resolved]
  - Oropharyngeal pain [Not Recovered/Not Resolved]
  - Pain [Not Recovered/Not Resolved]
